FAERS Safety Report 10361441 (Version 3)
Quarter: 2014Q3

REPORT INFORMATION
  Report Type: Report from Study
  Country: DE (occurrence: CO)
  Receive Date: 20140805
  Receipt Date: 20140926
  Transmission Date: 20150326
  Serious: Yes (Other)
  Sender: FDA-Public Use
  Company Number: DE-ACTELION-A-NJ2014-102991

PATIENT
  Age: 48 Year
  Sex: Female

DRUGS (8)
  1. VENTAVIS [Suspect]
     Active Substance: ILOPROST
     Dosage: UNK, QD
     Route: 055
     Dates: start: 2014
  2. ELTROXIN [Concomitant]
     Active Substance: LEVOTHYROXINE
     Dosage: UNK
     Dates: start: 2012
  3. LOSARTAN [Concomitant]
     Active Substance: LOSARTAN
     Indication: HYPERTENSION
  4. VENTAVIS [Suspect]
     Active Substance: ILOPROST
     Indication: CONNECTIVE TISSUE DISORDER
     Dosage: UNK, Q4HRS
     Route: 055
     Dates: start: 20140310, end: 2014
  5. PREDNISOLONE. [Concomitant]
     Active Substance: PREDNISOLONE
     Dosage: UNK
     Dates: start: 2006
  6. VENTAVIS [Suspect]
     Active Substance: ILOPROST
     Dosage: UNK, QID
     Route: 065
     Dates: start: 2014
  7. SILDENAFIL [Concomitant]
     Active Substance: SILDENAFIL
     Dosage: UNK
     Dates: start: 201403
  8. VENTAVIS [Suspect]
     Active Substance: ILOPROST
     Dosage: UNK, 5 TIMES A DAY
     Route: 065
     Dates: start: 20140512, end: 2014

REACTIONS (8)
  - Angina pectoris [Recovered/Resolved]
  - Intentional product misuse [Not Recovered/Not Resolved]
  - Fatigue [Recovered/Resolved]
  - Dyspepsia [Not Recovered/Not Resolved]
  - Headache [Recovered/Resolved]
  - Mouth haemorrhage [Recovered/Resolved]
  - Epistaxis [Recovered/Resolved]
  - Oesophageal pain [Not Recovered/Not Resolved]

NARRATIVE: CASE EVENT DATE: 20140310
